FAERS Safety Report 7072651-X (Version None)
Quarter: 2010Q4

REPORT INFORMATION
  Report Type: 
  Country: None (occurrence: None)
  Receive Date: 20101029
  Receipt Date: 20100224
  Transmission Date: 20110411
  Serious: No
  Sender: FDA-Public Use
  Company Number: A0846238A

PATIENT
  Sex: Female

DRUGS (4)
  1. ADVAIR DISKUS 100/50 [Suspect]
     Indication: ASTHMA
     Dosage: 1PUFF TWICE PER DAY
     Route: 055
     Dates: start: 19910101
  2. LEVOTHROID [Concomitant]
  3. LISINOPRIL [Concomitant]
  4. CELEXA [Concomitant]

REACTIONS (2)
  - BLOOD PRESSURE INCREASED [None]
  - TREMOR [None]
